FAERS Safety Report 8614383 (Version 2)
Quarter: 2014Q1

REPORT INFORMATION
  Report Type: Report from Study
  Country: DE (occurrence: DE)
  Receive Date: 20120614
  Receipt Date: 20140326
  Transmission Date: 20141002
  Serious: Yes (Death, Hospitalization)
  Sender: FDA-Public Use
  Company Number: DE-UCBSA-000904

PATIENT
  Age: 74 Year
  Sex: Male
  Weight: 120 kg

DRUGS (22)
  1. NEUPRO [Suspect]
     Indication: PARKINSON^S DISEASE
     Dosage: 1/2
     Route: 062
     Dates: start: 20061127, end: 20061210
  2. NEUPRO [Suspect]
     Indication: PARKINSON^S DISEASE
     Route: 062
     Dates: start: 20061211, end: 20081111
  3. NEUPRO [Suspect]
     Indication: PARKINSON^S DISEASE
     Dates: start: 20081112, end: 20081126
  4. PK LEVO [Concomitant]
     Indication: PARKINSON^S DISEASE
     Dosage: 100/25 MG 1/2 - 1/2 - 1/2
     Dates: start: 20060928, end: 20070907
  5. PK LEVO [Concomitant]
     Indication: PARKINSON^S DISEASE
     Dosage: 100/25 MG THREE TIMES DAILY
     Dates: start: 20070908, end: 20071111
  6. PK LEVO [Concomitant]
     Indication: PARKINSON^S DISEASE
     Dosage: 100/25 MG FOUR TIMES DAILY
     Dates: start: 20071112, end: 20080808
  7. AMLODIPINE [Concomitant]
     Indication: HYPERTENSION
     Dates: start: 2004, end: 20081126
  8. RAMIPRIL [Concomitant]
     Indication: HYPERTENSION
     Dates: start: 2004, end: 20081126
  9. TORASEMID [Concomitant]
     Indication: HYPERTENSION
     Dates: start: 2004, end: 20081126
  10. HCT RATIO [Concomitant]
     Indication: OEDEMA
     Dates: start: 2004, end: 20081126
  11. MARCUMAR [Concomitant]
     Indication: DEEP VEIN THROMBOSIS
     Dates: start: 2004, end: 20081117
  12. AZILECT [Concomitant]
     Indication: PARKINSON^S DISEASE
     Dates: start: 20080611, end: 20081126
  13. STALEVO [Concomitant]
     Indication: PARKINSON^S DISEASE
     Dosage: 100/25/200 MG
     Dates: start: 20080809, end: 20081126
  14. TOREM [Concomitant]
  15. DELIX [Concomitant]
  16. ALLOPURINOL [Concomitant]
  17. PANTOZOL [Concomitant]
  18. VIGANTOLETTEN [Concomitant]
  19. LOFTAN [Concomitant]
  20. BRONCHORETARD [Concomitant]
  21. CALCIUM BRAUSE [Concomitant]
  22. SPIRIVA [Concomitant]

REACTIONS (2)
  - Multi-organ failure [Fatal]
  - Cardiac failure [Unknown]
